FAERS Safety Report 23960621 (Version 1)
Quarter: 2024Q2

REPORT INFORMATION
  Report Type: Spontaneous
  Country: TR (occurrence: TR)
  Receive Date: 20240611
  Receipt Date: 20240611
  Transmission Date: 20240716
  Serious: Yes (Hospitalization)
  Sender: FDA-Public Use
  Company Number: TR-CHEPLA-2024007157

PATIENT
  Age: 27 Year
  Sex: Female

DRUGS (3)
  1. OLANZAPINE [Suspect]
     Active Substance: OLANZAPINE
     Indication: Intellectual disability
     Dosage: DAILY DOSE: 20 MILLIGRAM
  2. OLANZAPINE [Suspect]
     Active Substance: OLANZAPINE
     Indication: Schizophrenia
     Dosage: DAILY DOSE: 20 MILLIGRAM
  3. ARIPIPRAZOLE [Suspect]
     Active Substance: ARIPIPRAZOLE
     Dosage: DEPOT

REACTIONS (3)
  - Condition aggravated [Unknown]
  - Treatment noncompliance [Unknown]
  - Drug ineffective [Unknown]
